FAERS Safety Report 8495143-X (Version None)
Quarter: 2012Q3

REPORT INFORMATION
  Report Type: 
  Country: None (occurrence: None)
  Receive Date: 20120709
  Receipt Date: 20120628
  Transmission Date: 20120928
  Serious: Yes (Hospitalization)
  Sender: FDA-Public Use
  Company Number: FR-ASTRAZENECA-2012SE44724

PATIENT
  Age: 56 Year
  Sex: Male

DRUGS (5)
  1. SPECIALFOLDINE [Concomitant]
  2. KALETRA [Concomitant]
     Dates: start: 20080101
  3. NEXIUM [Suspect]
     Route: 048
  4. METHOTREXATE SODIUM [Interacting]
     Indication: RHEUMATOID ARTHRITIS
     Route: 065
     Dates: start: 20120601, end: 20120615
  5. SUSTIVA [Concomitant]
     Dates: start: 20080101

REACTIONS (3)
  - ANAEMIA [None]
  - THROMBOCYTOPENIA [None]
  - DRUG INTERACTION [None]
